FAERS Safety Report 18151575 (Version 2)
Quarter: 2020Q3

REPORT INFORMATION
  Report Type: Report from Study
  Country: CA (occurrence: CA)
  Receive Date: 20200814
  Receipt Date: 20200911
  Transmission Date: 20201103
  Serious: Yes (Hospitalization)
  Sender: FDA-Public Use
  Company Number: CA-JNJFOC-20200504209

PATIENT
  Age: 14 Year
  Sex: Male

DRUGS (3)
  1. REMICADE [Suspect]
     Active Substance: INFLIXIMAB
     Indication: CROHN^S DISEASE
     Dosage: LAST DOSE ON 06?APR?2020
     Route: 042
     Dates: start: 20200305
  2. REMICADE [Suspect]
     Active Substance: INFLIXIMAB
     Dosage: AT EVERY 4 WEEKS.
     Route: 042
     Dates: start: 20200311
  3. REMICADE [Suspect]
     Active Substance: INFLIXIMAB
     Route: 042

REACTIONS (4)
  - Inflammatory bowel disease [Unknown]
  - Anal abscess [Unknown]
  - Off label use [Unknown]
  - Product use issue [Unknown]

NARRATIVE: CASE EVENT DATE: 20200311
